FAERS Safety Report 24786379 (Version 3)
Quarter: 2025Q1

REPORT INFORMATION
  Report Type: Spontaneous
  Country: PK (occurrence: PK)
  Receive Date: 20241230
  Receipt Date: 20250310
  Transmission Date: 20250409
  Serious: Yes (Other)
  Sender: AMGEN
  Company Number: PK-PFIZER INC-PV202400096557

PATIENT
  Age: 41 Year
  Sex: Female

DRUGS (1)
  1. ENBREL [Suspect]
     Active Substance: ETANERCEPT
     Indication: Ankylosing spondylitis
     Dosage: 50 MG, WEEKLY
     Route: 058
     Dates: start: 202306

REACTIONS (6)
  - Colitis [Unknown]
  - Condition aggravated [Unknown]
  - Menstrual disorder [Unknown]
  - Blood pressure increased [Unknown]
  - Product dose omission issue [Unknown]
  - Pain [Unknown]
